FAERS Safety Report 7601714-2 (Version None)
Quarter: 2011Q3

REPORT INFORMATION
  Report Type: 
  Country: None (occurrence: None)
  Receive Date: 20110711
  Receipt Date: 20110629
  Transmission Date: 20111222
  Serious: Yes (Other)
  Sender: FDA-Public Use
  Company Number: JP-PFIZER INC-2011024261

PATIENT
  Age: 65 Year
  Sex: Male
  Weight: 69 kg

DRUGS (19)
  1. CAMPTOSAR [Suspect]
     Dosage: 170 MG/BODY (96.6 MG/M2)
     Route: 041
     Dates: start: 20090806, end: 20100107
  2. OXALIPLATIN [Suspect]
     Indication: COLON CANCER
     Dosage: 145 MG/BODY (82.4 MG/M2)
     Route: 041
     Dates: start: 20080814, end: 20090219
  3. CALCIUM LEVOFOLINATE [Concomitant]
     Dosage: 340 MG/BODY (193.2 MG/M2)
     Route: 041
     Dates: start: 20090806, end: 20090806
  4. FLUOROURACIL [Suspect]
     Indication: COLON CANCER
     Dosage: 680 MGMG/BODY (386.4 MG/M2)
     Route: 040
     Dates: start: 20080814, end: 20090219
  5. BEVACIZUMAB [Suspect]
     Indication: COLON CANCER
     Dosage: 325 MG/BODY
     Route: 041
     Dates: start: 20080814, end: 20090806
  6. ERBITUX [Concomitant]
     Dosage: 430 MG/BODY
     Route: 041
     Dates: start: 20090827, end: 20100107
  7. CAMPTOSAR [Suspect]
     Indication: COLON CANCER
     Dosage: 200 MG/BODY (113.6 MG/M2)
     Route: 041
     Dates: start: 20090625, end: 20090716
  8. ONDANSETRON [Concomitant]
     Indication: PREMEDICATION
     Dosage: 4 MG, UNK
     Route: 041
     Dates: start: 20090625, end: 20090806
  9. FLUOROURACIL [Suspect]
     Dosage: 695 MG/BODY (394.9 MG/M2)
     Route: 040
     Dates: start: 20090625, end: 20100107
  10. ERBITUX [Concomitant]
     Indication: COLON CANCER
     Dosage: 700 MG/BODY
     Route: 041
     Dates: start: 20090820, end: 20090820
  11. DEXAMETHASONE SODIUM PHOSPHATE [Concomitant]
     Indication: PREMEDICATION
     Dosage: 6.6 MG, UNK
     Route: 041
     Dates: start: 20090625, end: 20100107
  12. POLARAMINE [Concomitant]
     Indication: PREMEDICATION
     Dosage: 5 MG, UNK
     Route: 041
     Dates: start: 20090820, end: 20100107
  13. FLUOROURACIL [Suspect]
     Dosage: 4100 MG/BODY/D1-2 (2329.5 MG/M2/D1-2)
     Route: 041
     Dates: start: 20080814, end: 20090219
  14. FLUOROURACIL [Suspect]
     Dosage: 4180 MG/BODY/D1-2 (2375 MG/M2/D1-2)
     Route: 041
     Dates: start: 20090625, end: 20100107
  15. CALCIUM LEVOFOLINATE [Concomitant]
     Dosage: 345 MG/BODY (196MG/M2)
     Route: 041
     Dates: start: 20090625, end: 20090716
  16. DECADRON #1 [Concomitant]
     Indication: PREMEDICATION
     Dosage: 8 MG, UNK
     Route: 041
     Dates: start: 20080814, end: 20090219
  17. CALCIUM LEVOFOLINATE [Concomitant]
     Dosage: 345 MG/BODY (196 MG/M2)
     Route: 041
     Dates: start: 20090820, end: 20100107
  18. CALCIUM LEVOFOLINATE [Concomitant]
     Indication: COLON CANCER
     Dosage: 300 MG/BODY (170.5 MG/M2)
     Route: 041
     Dates: start: 20080814, end: 20090219
  19. RAMELTEON [Concomitant]
     Indication: PREMEDICATION
     Dosage: 0.3 MG, UNK
     Route: 041
     Dates: start: 20080814, end: 20090219

REACTIONS (2)
  - NEUTROPENIA [None]
  - NEUROPATHY PERIPHERAL [None]
